FAERS Safety Report 18386056 (Version 2)
Quarter: 2020Q4

REPORT INFORMATION
  Report Type: Spontaneous
  Country: US (occurrence: US)
  Receive Date: 20201015
  Receipt Date: 20201208
  Transmission Date: 20210114
  Serious: No
  Sender: FDA-Public Use
  Company Number: US-GLAXOSMITHKLINE-US2020202258

PATIENT
  Sex: Female

DRUGS (1)
  1. TRELEGY ELLIPTA [Suspect]
     Active Substance: FLUTICASONE FUROATE\UMECLIDINIUM BROMIDE\VILANTEROL TRIFENATATE
     Indication: PRODUCT USED FOR UNKNOWN INDICATION
     Dosage: UNK (100/62.5/25 MCG)
     Route: 055
     Dates: start: 202002

REACTIONS (6)
  - Wrong technique in device usage process [Unknown]
  - Dyspnoea [Unknown]
  - Product dose omission issue [Unknown]
  - Emotional distress [Unknown]
  - Product complaint [Unknown]
  - Chest pain [Unknown]
